FAERS Safety Report 5391568-X (Version None)
Quarter: 2007Q3

REPORT INFORMATION
  Report Type: 
  Country: None (occurrence: None)
  Receive Date: 20070717
  Receipt Date: 20070702
  Transmission Date: 20080115
  Serious: Yes (Other)
  Sender: FDA-Public Use
  Company Number: 100#03#2007-02490

PATIENT
  Age: 45 Year
  Sex: Male

DRUGS (1)
  1. HYGROTON [Suspect]
     Indication: HYPERTENSION
     Dosage: 1 X 12.5 MG, ORAL
     Route: 048
     Dates: start: 20070522, end: 20070523

REACTIONS (1)
  - VISION BLURRED [None]
